FAERS Safety Report 20749542 (Version 2)
Quarter: 2022Q2

REPORT INFORMATION
  Report Type: Spontaneous
  Country: US (occurrence: US)
  Receive Date: 20220426
  Receipt Date: 20220510
  Transmission Date: 20220720
  Serious: Yes (Life-Threatening, Hospitalization, Other)
  Sender: FDA-Public Use
  Company Number: US-Accord-261951

PATIENT
  Age: 49 Year
  Sex: Male

DRUGS (1)
  1. CISPLATIN [Suspect]
     Active Substance: CISPLATIN
     Indication: Head and neck cancer

REACTIONS (5)
  - Hepatitis B reactivation [Recovering/Resolving]
  - Ascites [Unknown]
  - Portal hypertension [Unknown]
  - Immune reconstitution inflammatory syndrome [Unknown]
  - Hepatic cirrhosis [Unknown]
